FAERS Safety Report 10169025 (Version 1)
Quarter: 2014Q2

REPORT INFORMATION
  Report Type: Spontaneous
  Country: DE (occurrence: None)
  Receive Date: 20140509
  Receipt Date: 20140509
  Transmission Date: 20141212
  Serious: Yes (Other)
  Sender: FDA-Public Use
  Company Number: AUR-APL-2014-05412

PATIENT
  Age: 43 Year
  Sex: Female

DRUGS (1)
  1. LAMOTRIGINE [Suspect]
     Indication: PARTIAL SEIZURES
     Route: 048
     Dates: start: 20140404, end: 20140405

REACTIONS (1)
  - Dermatitis allergic [None]
